FAERS Safety Report 12912836 (Version 1)
Quarter: 2016Q4

REPORT INFORMATION
  Report Type: Spontaneous
  Country: None (occurrence: US)
  Receive Date: 20161104
  Receipt Date: 20161104
  Transmission Date: 20170207
  Serious: Yes (Other)
  Sender: FDA-Public Use
  Company Number: US-STANDARD HOMEOPATHIC COMPANY-1059237

PATIENT
  Age: 6 Month
  Sex: Female

DRUGS (1)
  1. BABY TEETHING (HYLAND HOMEOPATHIC) [Suspect]
     Active Substance: HOMEOPATHICS
     Indication: TEETHING
     Route: 048

REACTIONS (4)
  - Eczema [None]
  - Agitation [None]
  - Pyrexia [None]
  - Insomnia [None]

NARRATIVE: CASE EVENT DATE: 2015
